FAERS Safety Report 9475253 (Version 2)
Quarter: 2013Q3

REPORT INFORMATION
  Report Type: Spontaneous
  Country: NL (occurrence: NL)
  Receive Date: 20130825
  Receipt Date: 20130923
  Transmission Date: 20140515
  Serious: Yes (Other)
  Sender: FDA-Public Use
  Company Number: NL-PFIZER INC-2013239812

PATIENT
  Age: 59 Year
  Sex: Female

DRUGS (3)
  1. BOSUTINIB [Suspect]
     Dosage: 500 MG, 1X/DAY
     Dates: start: 2013
  2. ENALAPRIL [Concomitant]
  3. DICLOFENAC [Concomitant]

REACTIONS (2)
  - Angioedema [Recovered/Resolved]
  - Lip swelling [Recovered/Resolved]
